FAERS Safety Report 4775562-5 (Version None)
Quarter: 2005Q3

REPORT INFORMATION
  Report Type: 
  Country: None (occurrence: None)
  Receive Date: 20050922
  Receipt Date: 20050817
  Transmission Date: 20060218
  Serious: Yes (Hospitalization)
  Sender: FDA-Public Use
  Company Number: 2005UW12217

PATIENT
  Sex: Female

DRUGS (2)
  1. SEROQUEL [Suspect]
     Route: 048
     Dates: start: 20010101
  2. SEROQUEL [Suspect]

REACTIONS (11)
  - BREAST PAIN [None]
  - DYSKINESIA [None]
  - DYSPNOEA [None]
  - MENSTRUATION IRREGULAR [None]
  - NASAL CONGESTION [None]
  - PANIC ATTACK [None]
  - PHARYNGOLARYNGEAL PAIN [None]
  - THINKING ABNORMAL [None]
  - THROAT TIGHTNESS [None]
  - THYROID FUNCTION TEST ABNORMAL [None]
  - VERTIGO [None]
